FAERS Safety Report 5784847-5 (Version None)
Quarter: 2008Q2

REPORT INFORMATION
  Report Type: 
  Country: None (occurrence: None)
  Receive Date: 20080624
  Receipt Date: 20070417
  Transmission Date: 20081010
  Serious: No
  Sender: FDA-Public Use
  Company Number: US-ASTRAZENECA-2007UW07447

PATIENT
  Age: 62 Year
  Sex: Male
  Weight: 63.5 kg

DRUGS (4)
  1. PULMICORT-100 [Suspect]
     Indication: EMPHYSEMA
     Route: 055
  2. FORADIL [Concomitant]
  3. SPIRIVA [Concomitant]
  4. ALBUTEROL [Concomitant]

REACTIONS (2)
  - THROAT IRRITATION [None]
  - TINNITUS [None]
